FAERS Safety Report 24149333 (Version 6)
Quarter: 2024Q4

REPORT INFORMATION
  Report Type: Report from Study
  Country: PT (occurrence: PT)
  Receive Date: 20240730
  Receipt Date: 20241007
  Transmission Date: 20250115
  Serious: Yes (Other)
  Sender: ABBVIE
  Company Number: PT-ABBVIE-5855941

PATIENT
  Age: 78 Year
  Sex: Male

DRUGS (13)
  1. CARBIDOPA\LEVODOPA [Suspect]
     Active Substance: CARBIDOPA\LEVODOPA
     Indication: Parkinson^s disease
     Dosage: 20 MG + 5 MG (GASTRIC),FREQUENCY TEXT: MORN:4.7;MAIN:4.2CC/H;EXTRA:3CC
     Route: 050
     Dates: start: 20240616, end: 20240820
  2. CARBIDOPA\LEVODOPA [Suspect]
     Active Substance: CARBIDOPA\LEVODOPA
     Dosage: 20 MG + 5 MG,- FREQUENCY: MORN:7.5;MAIN:2.6CC/H;EXTRA:1CC
     Route: 050
     Dates: start: 20210831
  3. CARBIDOPA\LEVODOPA [Suspect]
     Active Substance: CARBIDOPA\LEVODOPA
     Dosage: 20 MG + 5 MG (GASTRIC)?FREQUENCY: MORN:4.7;MAIN:4.4CC/H;EXTRA:3CC
     Route: 050
     Dates: start: 20240820, end: 20240903
  4. CARBIDOPA\LEVODOPA [Suspect]
     Active Substance: CARBIDOPA\LEVODOPA
     Dosage: 20 MG + 5 MG (GASTRIC)?FREQUENCY: MORN:5CC;MAIN:4.4CC/H;EXTRA:3CC
     Route: 050
     Dates: start: 20240903, end: 20241002
  5. CARBIDOPA\LEVODOPA [Suspect]
     Active Substance: CARBIDOPA\LEVODOPA
     Dosage: 20 MG + 5 MG (GASTRIC)?5.5CC;MAIN:4.4CC/H;EXTRA:3CC
     Route: 050
     Dates: start: 20241002
  6. MEMANTINE [Concomitant]
     Active Substance: MEMANTINE
     Indication: Product used for unknown indication
     Dosage: 1 TABLET, FORM STRENGTH: 20 MILLIGRAM ?FREQUENCY TEXT: AT 7H30AM?START DATE TEXT: BEFORE DUODOPA
     Route: 048
  7. SINEMET CR [Concomitant]
     Active Substance: CARBIDOPA\LEVODOPA
     Indication: Product used for unknown indication
     Dosage: 1 TABLET,FREQUENCY TEXT: AT 10PM,START DATE TEXT: BEFORE DUODOPA
     Route: 048
  8. TRAZODONE HYDROCHLORIDE [Concomitant]
     Active Substance: TRAZODONE HYDROCHLORIDE
     Indication: Product used for unknown indication
     Dosage: 1 TABLET,FORM STRENGTH-100 MG,FREQUENCY TEXT: AT 10PM?START DATE TEXT: BEFORE DUODOPA
     Route: 048
  9. PAROXETINE [Concomitant]
     Active Substance: PAROXETINE
     Indication: Product used for unknown indication
     Dosage: 1 TABLET, FORM STRENGTH-10 MG,FREQUENCY TEXT: AT 7H30AM?START DATE TEXT: BEFORE DUODOPA
     Route: 048
  10. RIVASTIGMINE [Concomitant]
     Active Substance: RIVASTIGMINE
     Indication: Product used for unknown indication
     Dosage: START DATE TEXT: BEFORE DUODOPA?13.3
     Route: 062
  11. CLOZAPINE [Concomitant]
     Active Substance: CLOZAPINE
     Indication: Product used for unknown indication
     Dosage: START DATE TEXT: BEFORE DUODOPA?FORM STRENGTH: 25 MILLIGRAM
     Route: 048
  12. CLOZAPINE [Concomitant]
     Active Substance: CLOZAPINE
     Indication: Product used for unknown indication
     Dosage: FREQUENCY TEXT: FREQUENCY TEXT: 1/4 AT 3PM;2 TABLETS AT 10PM?FORM STRENGTH: 25 MILLIGRAM?56.25 MG
     Route: 048
  13. TRAZODONE [Concomitant]
     Active Substance: TRAZODONE HYDROCHLORIDE
     Indication: Product used for unknown indication
     Dosage: 1 TABLET, FORM STRENGTH-100 MILLIGRAM, FREQUENCY TEXT: AT 10PM?START DATE TEXT: BEFORE DUODOPA
     Route: 048

REACTIONS (6)
  - Infection [Recovered/Resolved]
  - Hallucination, visual [Recovered/Resolved]
  - Aggression [Recovering/Resolving]
  - Gait disturbance [Not Recovered/Not Resolved]
  - Confusional state [Recovering/Resolving]
  - Dyskinesia [Recovering/Resolving]

NARRATIVE: CASE EVENT DATE: 20240101
